FAERS Safety Report 25373647 (Version 1)
Quarter: 2025Q2

REPORT INFORMATION
  Report Type: Report from Study
  Country: IN (occurrence: IN)
  Receive Date: 20250529
  Receipt Date: 20250529
  Transmission Date: 20250717
  Serious: Yes (Other)
  Sender: MYLAN
  Company Number: IN-MYLANLABS-2025M1045486

PATIENT
  Age: 33 Year
  Sex: Female

DRUGS (12)
  1. DOXORUBICIN [Suspect]
     Active Substance: DOXORUBICIN
     Indication: Breast cancer metastatic
  2. DOXORUBICIN [Suspect]
     Active Substance: DOXORUBICIN
     Route: 065
  3. DOXORUBICIN [Suspect]
     Active Substance: DOXORUBICIN
     Route: 065
  4. DOXORUBICIN [Suspect]
     Active Substance: DOXORUBICIN
  5. CAPECITABINE [Suspect]
     Active Substance: CAPECITABINE
     Indication: Breast cancer metastatic
  6. CAPECITABINE [Suspect]
     Active Substance: CAPECITABINE
     Route: 065
  7. CAPECITABINE [Suspect]
     Active Substance: CAPECITABINE
     Route: 065
  8. CAPECITABINE [Suspect]
     Active Substance: CAPECITABINE
  9. PACLITAXEL [Suspect]
     Active Substance: PACLITAXEL
     Indication: Breast cancer metastatic
  10. PACLITAXEL [Suspect]
     Active Substance: PACLITAXEL
     Route: 065
  11. PACLITAXEL [Suspect]
     Active Substance: PACLITAXEL
     Route: 065
  12. PACLITAXEL [Suspect]
     Active Substance: PACLITAXEL

REACTIONS (2)
  - Drug ineffective [Unknown]
  - Disease progression [Unknown]
